FAERS Safety Report 16416998 (Version 1)
Quarter: 2019Q2

REPORT INFORMATION
  Report Type: Spontaneous
  Country: ES (occurrence: ES)
  Receive Date: 20190611
  Receipt Date: 20190611
  Transmission Date: 20190711
  Serious: Yes (Other)
  Sender: FDA-Public Use
  Company Number: ES-UCBSA-2019024023

PATIENT
  Age: 28 Year
  Sex: Female

DRUGS (8)
  1. PARACETAMOL [Concomitant]
     Active Substance: ACETAMINOPHEN
     Indication: PAIN
     Dosage: 1 GRAM
     Route: 042
     Dates: start: 20181003
  2. FENITOINA [Concomitant]
     Active Substance: PHENYTOIN
     Indication: SEIZURE PROPHYLAXIS
     Dosage: 100 MILLIGRAM
     Route: 042
     Dates: start: 20181003
  3. METOCLOPRAMIDA [Concomitant]
     Active Substance: METOCLOPRAMIDE HYDROCHLORIDE
     Indication: PROPHYLAXIS OF NAUSEA AND VOMITING
     Dosage: 10 MILLIGRAM
     Route: 042
     Dates: start: 20181003
  4. OMEPRAZOL [Concomitant]
     Active Substance: OMEPRAZOLE
     Indication: PROPHYLAXIS
     Dosage: 20 MILLIGRAM, ONCE DAILY (QD)
     Route: 042
     Dates: start: 20181003
  5. AUGMENTINE [Suspect]
     Active Substance: AMOXICILLIN\CLAVULANATE POTASSIUM
     Indication: INFECTION
     Dosage: 1 DOSAGE FORM, 3X/DAY (TID)
     Route: 042
     Dates: start: 20181003, end: 20181010
  6. LEVETIRACETAM. [Suspect]
     Active Substance: LEVETIRACETAM
     Indication: SEIZURE
     Dosage: 1 GRAM, 1 DAY
     Route: 042
     Dates: start: 20181003, end: 20181010
  7. PROPOFOL. [Concomitant]
     Active Substance: PROPOFOL
     Indication: SEDATION
     Route: 042
     Dates: start: 20181003, end: 20181010
  8. MIDAZOLAM [Concomitant]
     Active Substance: MIDAZOLAM HYDROCHLORIDE
     Indication: SEDATION
     Dosage: UNK
     Route: 042
     Dates: start: 20181003, end: 20181010

REACTIONS (2)
  - Leukopenia [Recovered/Resolved]
  - Anaemia [Recovered/Resolved]

NARRATIVE: CASE EVENT DATE: 20181004
